FAERS Safety Report 4898288-6 (Version None)
Quarter: 2006Q1

REPORT INFORMATION
  Report Type: 
  Country: None (occurrence: None)
  Receive Date: 20060127
  Receipt Date: 20060116
  Transmission Date: 20060701
  Serious: Yes (Hospitalization)
  Sender: FDA-Public Use
  Company Number: US200511002031

PATIENT
  Age: 79 Year
  Sex: Female

DRUGS (3)
  1. FORTEO [Suspect]
     Indication: OSTEOPOROSIS
     Dosage: 20 UG/DAY, DAILY (1/D)
     Dates: start: 20050801
  2. FORTEO PEN (FORTEO PEN) PEN, DISPOSABLE [Concomitant]
  3. DARVOCET-N 100 [Concomitant]

REACTIONS (4)
  - BACK PAIN [None]
  - MUSCLE INJURY [None]
  - MUSCULOSKELETAL STIFFNESS [None]
  - PHARMACEUTICAL PRODUCT COMPLAINT [None]
